FAERS Safety Report 5764013-X (Version None)
Quarter: 2008Q2

REPORT INFORMATION
  Report Type: 
  Country: None (occurrence: None)
  Receive Date: 20080609
  Receipt Date: 20080218
  Transmission Date: 20081010
  Serious: No
  Sender: FDA-Public Use
  Company Number: 002#2#2008-00071

PATIENT
  Age: 71 Year
  Sex: Male
  Weight: 70.3075 kg

DRUGS (10)
  1. NEUPRO [Suspect]
     Indication: PARKINSON'S DISEASE
     Dosage: SEE IMAGE
     Route: 062
     Dates: start: 20080124, end: 20080130
  2. NEUPRO [Suspect]
     Indication: PARKINSON'S DISEASE
     Dosage: SEE IMAGE
     Route: 062
     Dates: start: 20080131, end: 20080206
  3. NEUPRO [Suspect]
     Indication: PARKINSON'S DISEASE
     Dosage: SEE IMAGE
     Route: 062
     Dates: start: 20080207, end: 20080218
  4. NEUPRO [Suspect]
     Indication: PARKINSON'S DISEASE
     Dosage: SEE IMAGE
     Route: 062
     Dates: start: 20080219
  5. NEUPRO [Suspect]
  6. AZILECT [Concomitant]
  7. FLOMAX [Concomitant]
  8. UROXATRAL XR [Concomitant]
  9. LUMAGON [Concomitant]
  10. MIRAPEX [Concomitant]

REACTIONS (3)
  - ABNORMAL DREAMS [None]
  - MEDICATION ERROR [None]
  - SLEEP DISORDER [None]
